FAERS Safety Report 17323001 (Version 2)
Quarter: 2020Q1

REPORT INFORMATION
  Report Type: Spontaneous
  Country: CA (occurrence: CA)
  Receive Date: 20200127
  Receipt Date: 20200302
  Transmission Date: 20200409
  Serious: Yes (Life-Threatening, Hospitalization)
  Sender: FDA-Public Use
  Company Number: CA-JNJFOC-20200122362

PATIENT
  Age: 9 Year
  Sex: Male

DRUGS (8)
  1. PARACETAMOL [Suspect]
     Active Substance: ACETAMINOPHEN
     Indication: OROPHARYNGEAL PAIN
     Route: 065
  2. CONCERTA [Suspect]
     Active Substance: METHYLPHENIDATE HYDROCHLORIDE
     Indication: RHINORRHOEA
     Route: 065
  3. DIPHENHYDRAMINE HYDROCHLORIDE. [Suspect]
     Active Substance: DIPHENHYDRAMINE HYDROCHLORIDE
     Indication: NASOPHARYNGITIS
     Route: 048
  4. CONCERTA [Suspect]
     Active Substance: METHYLPHENIDATE HYDROCHLORIDE
     Indication: DYSPHAGIA
  5. PARACETAMOL [Suspect]
     Active Substance: ACETAMINOPHEN
     Indication: RHINORRHOEA
     Route: 048
  6. PARACETAMOL [Suspect]
     Active Substance: ACETAMINOPHEN
     Indication: DYSPHAGIA
  7. CONCERTA [Suspect]
     Active Substance: METHYLPHENIDATE HYDROCHLORIDE
     Indication: OROPHARYNGEAL PAIN
  8. STRATTERA [Suspect]
     Active Substance: ATOMOXETINE HYDROCHLORIDE
     Indication: PRODUCT USED FOR UNKNOWN INDICATION
     Route: 065

REACTIONS (10)
  - Hunger [Unknown]
  - Ear infection [Unknown]
  - Off label use [Unknown]
  - Oropharyngeal pain [Unknown]
  - Seizure [Unknown]
  - Product use issue [Unknown]
  - Tremor [Unknown]
  - Blood pressure decreased [Unknown]
  - Drug ineffective [Unknown]
  - Product use in unapproved indication [Unknown]
